FAERS Safety Report 21789674 (Version 1)
Quarter: 2022Q4

REPORT INFORMATION
  Report Type: Spontaneous
  Country: US (occurrence: None)
  Receive Date: 20221228
  Receipt Date: 20221228
  Transmission Date: 20230113
  Serious: Yes (Other)
  Sender: FDA-Public Use
  Company Number: None

PATIENT
  Age: 56 Year
  Sex: Female
  Weight: 80.1 kg

DRUGS (1)
  1. PAXLOVID [Suspect]
     Active Substance: NIRMATRELVIR\RITONAVIR
     Indication: COVID-19
     Dates: start: 20221216, end: 20221220

REACTIONS (6)
  - SARS-CoV-2 test negative [None]
  - SARS-CoV-2 test positive [None]
  - Pharyngeal swelling [None]
  - Sinus disorder [None]
  - Swelling [None]
  - Quarantine [None]

NARRATIVE: CASE EVENT DATE: 20221225
